FAERS Safety Report 21134851 (Version 2)
Quarter: 2022Q3

REPORT INFORMATION
  Report Type: Spontaneous
  Country: CA (occurrence: CA)
  Receive Date: 20220727
  Receipt Date: 20220807
  Transmission Date: 20221027
  Serious: Yes (Other)
  Sender: FDA-Public Use
  Company Number: CA-JNJFOC-20220746663

PATIENT
  Age: 42 Year
  Sex: Male
  Weight: 118 kg

DRUGS (2)
  1. REMICADE [Suspect]
     Active Substance: INFLIXIMAB
     Indication: Colitis ulcerative
     Route: 041
  2. PREDNISONE [Concomitant]
     Active Substance: PREDNISONE

REACTIONS (6)
  - Colitis ulcerative [Not Recovered/Not Resolved]
  - Frequent bowel movements [Not Recovered/Not Resolved]
  - COVID-19 [Not Recovered/Not Resolved]
  - Condition aggravated [Not Recovered/Not Resolved]
  - Off label use [Not Recovered/Not Resolved]
  - Drug ineffective [Not Recovered/Not Resolved]
